FAERS Safety Report 16445348 (Version 1)
Quarter: 2019Q2

REPORT INFORMATION
  Report Type: Spontaneous
  Country: US (occurrence: US)
  Receive Date: 20190618
  Receipt Date: 20190618
  Transmission Date: 20190711
  Serious: Yes (Hospitalization)
  Sender: FDA-Public Use
  Company Number: US-ROCHE-2337391

PATIENT
  Age: 69 Year
  Sex: Female

DRUGS (1)
  1. ALECENSA [Suspect]
     Active Substance: ALECTINIB HYDROCHLORIDE
     Indication: LUNG NEOPLASM MALIGNANT
     Dosage: 1 MONTHS, ONGOING
     Route: 048

REACTIONS (5)
  - Dyspnoea [Unknown]
  - Fatigue [Unknown]
  - Dizziness [Unknown]
  - Heart rate abnormal [Unknown]
  - Constipation [Unknown]

NARRATIVE: CASE EVENT DATE: 20190611
